FAERS Safety Report 9934863 (Version 2)
Quarter: 2014Q1

REPORT INFORMATION
  Report Type: Spontaneous
  Country: DE (occurrence: DE)
  Receive Date: 20140228
  Receipt Date: 20140228
  Transmission Date: 20141002
  Serious: Yes (Disabling)
  Sender: FDA-Public Use
  Company Number: DE-SA-2013SA129691

PATIENT
  Sex: Male
  Weight: 80 kg

DRUGS (5)
  1. AUBAGIO [Suspect]
     Indication: MULTIPLE SCLEROSIS
     Route: 048
     Dates: start: 20131018
  2. BACLOFEN [Concomitant]
     Indication: MUSCLE SPASMS
     Route: 048
     Dates: start: 201110
  3. TILIDINE [Concomitant]
     Indication: NEURALGIA
     Route: 048
     Dates: start: 201307
  4. GABAPENTIN [Concomitant]
     Indication: NEURALGIA
     Route: 048
     Dates: start: 201307
  5. AMITRIPTYLIN [Concomitant]
     Indication: NEURALGIA
     Route: 048
     Dates: start: 201312

REACTIONS (4)
  - Sleep disorder [Not Recovered/Not Resolved]
  - Hypervigilance [Not Recovered/Not Resolved]
  - Restlessness [Not Recovered/Not Resolved]
  - Disturbance in attention [Not Recovered/Not Resolved]
